FAERS Safety Report 10022678 (Version 2)
Quarter: 2014Q1

REPORT INFORMATION
  Report Type: Spontaneous
  Country: ES (occurrence: ES)
  Receive Date: 20140319
  Receipt Date: 20140319
  Transmission Date: 20141002
  Serious: Yes (Other)
  Sender: FDA-Public Use
  Company Number: ES-PFIZER INC-2014074185

PATIENT
  Age: 40 Year
  Sex: Female
  Weight: 42.5 kg

DRUGS (5)
  1. CHAMPIX [Suspect]
     Indication: SMOKING CESSATION THERAPY
     Dosage: 0.5 MG, 2X/DAY (IN THE MORNING AND IN THE AFTERNOON)
     Route: 048
     Dates: start: 20140307, end: 20140312
  2. ESCITALOPRAM OXALATE [Interacting]
     Dosage: 20 MG, UNK
     Dates: start: 2011, end: 2014
  3. ESCITALOPRAM OXALATE [Interacting]
     Dosage: 10 MG, UNK
     Dates: start: 2014, end: 20140306
  4. DIAZEPAM [Concomitant]
     Dosage: AT NIGHTS
  5. HALCION [Concomitant]
     Indication: SLEEP DISORDER

REACTIONS (5)
  - Dizziness [Not Recovered/Not Resolved]
  - Vertigo [Not Recovered/Not Resolved]
  - Fall [Unknown]
  - Diarrhoea [Recovered/Resolved]
  - Drug interaction [Not Recovered/Not Resolved]
